FAERS Safety Report 6210012-3 (Version None)
Quarter: 2009Q2

REPORT INFORMATION
  Report Type: 
  Country: None (occurrence: None)
  Receive Date: 20090529
  Receipt Date: 20090529
  Transmission Date: 20091009
  Serious: No
  Sender: FDA-Public Use
  Company Number: None

PATIENT
  Age: 63 Year
  Sex: Male
  Weight: 85.73 kg

DRUGS (1)
  1. SIMVASTATIN [Suspect]
     Dosage: 80 MG AT BEDTIME PO
     Route: 048
     Dates: start: 20080131, end: 20090505

REACTIONS (1)
  - MYALGIA [None]
